FAERS Safety Report 25857440 (Version 1)
Quarter: 2025Q3

REPORT INFORMATION
  Report Type: Spontaneous
  Country: SA (occurrence: SA)
  Receive Date: 20250929
  Receipt Date: 20250929
  Transmission Date: 20251020
  Serious: Yes (Other)
  Sender: EPIC PHARM
  Company Number: SA-EPICPHARMA-SA-2025EPCLIT01107

PATIENT

DRUGS (4)
  1. VORICONAZOLE [Suspect]
     Active Substance: VORICONAZOLE
     Indication: Fungal disease carrier
     Route: 048
  2. POSACONAZOLE [Concomitant]
     Active Substance: POSACONAZOLE
     Route: 048
  3. POSACONAZOLE [Concomitant]
     Active Substance: POSACONAZOLE
     Route: 048
  4. POSACONAZOLE [Concomitant]
     Active Substance: POSACONAZOLE
     Dosage: 50 CYCLES
     Route: 048

REACTIONS (1)
  - Hallucination, visual [Unknown]
